FAERS Safety Report 14626762 (Version 1)
Quarter: 2018Q1

REPORT INFORMATION
  Report Type: Spontaneous
  Country: US (occurrence: US)
  Receive Date: 20180312
  Receipt Date: 20180312
  Transmission Date: 20180509
  Serious: Yes (Other)
  Sender: FDA-Public Use
  Company Number: US-TARO-2017TAR00600

PATIENT
  Age: 41 Year
  Sex: Male
  Weight: 81.63 kg

DRUGS (3)
  1. MULTIVITAMIN [Concomitant]
     Active Substance: VITAMINS
     Dosage: UNK, 1X/DAY
  2. LAMOTRIGINE TABLETS 100 MG [Suspect]
     Active Substance: LAMOTRIGINE
     Indication: EPILEPSY
     Dosage: 100 MG, 1X/DAY
     Route: 048
     Dates: start: 20170630, end: 20170712
  3. LISINOPRIL. [Concomitant]
     Active Substance: LISINOPRIL
     Dosage: 20 MG, 1X/DAY

REACTIONS (6)
  - Seizure [Recovered/Resolved]
  - Drug ineffective [Recovered/Resolved]
  - Product substitution issue [Recovered/Resolved]
  - Hyperhidrosis [Recovered/Resolved]
  - Postictal state [Recovered/Resolved]
  - Epileptic aura [Recovered/Resolved]

NARRATIVE: CASE EVENT DATE: 20170630
